FAERS Safety Report 8642889 (Version 4)
Quarter: 2013Q1

REPORT INFORMATION
  Report Type: Report from Study
  Country: VE (occurrence: VE)
  Receive Date: 20120629
  Receipt Date: 20130121
  Transmission Date: 20140127
  Serious: Yes (Life-Threatening, Hospitalization, Other)
  Sender: FDA-Public Use
  Company Number: PHHY2012VE055247

PATIENT
  Age: 6 Year
  Sex: Male

DRUGS (6)
  1. ICL670A [Suspect]
     Indication: SICKLE CELL ANAEMIA
     Dosage: 500 MG, UNK
     Route: 048
     Dates: start: 20120330
  2. ICL670A [Suspect]
     Indication: HAEMOSIDEROSIS
  3. BLOOD CELLS, PACKED HUMAN [Concomitant]
     Dates: start: 20120612
  4. BLOOD CELLS, PACKED HUMAN [Concomitant]
     Dates: start: 20120618
  5. BLOOD CELLS, PACKED HUMAN [Concomitant]
     Dates: start: 20120619
  6. BLOOD CELLS, PACKED HUMAN [Concomitant]
     Dates: start: 20120629

REACTIONS (2)
  - Pain in extremity [Recovered/Resolved]
  - Hypersplenism [Unknown]
